FAERS Safety Report 6766431-X (Version None)
Quarter: 2010Q2

REPORT INFORMATION
  Report Type: 
  Country: None (occurrence: None)
  Receive Date: 20100609
  Receipt Date: 20100528
  Transmission Date: 20101027
  Serious: Yes (Life-Threatening, Hospitalization, Disabling, Other)
  Sender: FDA-Public Use
  Company Number: TRP_06773_2010

PATIENT
  Sex: Male
  Weight: 64.1 kg

DRUGS (7)
  1. RIBASPHERE [Suspect]
     Indication: HEPATITIS C
     Dosage: (1000 MG, DAILY ORAL)
     Route: 048
     Dates: start: 20100112, end: 20100513
  2. INFERGEN [Suspect]
     Indication: HEPATITIS C
     Dosage: (15 ?G QD SUBCUTANEOUS)
     Route: 058
     Dates: start: 20100427, end: 20100513
  3. PEGASYS [Suspect]
     Indication: HEPATITIS C
     Dosage: (180 ?G 1X/WEEK)
     Dates: start: 20100112, end: 20100401
  4. VIDEX [Concomitant]
  5. VIREAD [Concomitant]
  6. BENADRYL [Concomitant]
  7. TRAZODONE HYDROCHLORIDE [Concomitant]

REACTIONS (14)
  - CHEST PAIN [None]
  - CONSTIPATION [None]
  - DIARRHOEA [None]
  - FATIGUE [None]
  - HAEMODIALYSIS [None]
  - INFLUENZA LIKE ILLNESS [None]
  - PAIN [None]
  - PNEUMONIA [None]
  - PYREXIA [None]
  - RECTAL HAEMORRHAGE [None]
  - RENAL FAILURE ACUTE [None]
  - STOMATITIS [None]
  - UNRESPONSIVE TO STIMULI [None]
  - VISION BLURRED [None]
